FAERS Safety Report 12909663 (Version 4)
Quarter: 2016Q4

REPORT INFORMATION
  Report Type: Spontaneous
  Country: JP (occurrence: JP)
  Receive Date: 20161104
  Receipt Date: 20161221
  Transmission Date: 20170207
  Serious: Yes (Hospitalization)
  Sender: FDA-Public Use
  Company Number: JP-009507513-1611JPN000948

PATIENT
  Age: 1 Year
  Sex: Male

DRUGS (5)
  1. SOLU-MEDROL [Concomitant]
     Active Substance: METHYLPREDNISOLONE SODIUM SUCCINATE
     Dosage: 12.5 MG IN 3 DOSES
     Route: 042
     Dates: start: 20161005, end: 20161009
  2. KIPRES [Suspect]
     Active Substance: MONTELUKAST SODIUM
     Indication: ASTHMA
     Dosage: 4 MG, QD
     Route: 048
     Dates: start: 20160816
  3. MUCOSOLVAN [Concomitant]
     Active Substance: AMBROXOL HYDROCHLORIDE
     Indication: ASTHMA
     Dosage: 3 CC/DAY, DIVIDED TID
     Route: 048
     Dates: start: 20160928, end: 20161010
  4. MUCODYNE [Concomitant]
     Active Substance: CARBOCYSTEINE
     Indication: ASTHMA
     Dosage: 7 CC/DAY, DIVIDED TID
     Route: 048
     Dates: start: 20160928, end: 20161010
  5. MEPTIN [Concomitant]
     Active Substance: PROCATEROL HYDROCHLORIDE
     Indication: ASTHMA
     Dosage: 5 CC/DAY, DIVIDED TID
     Route: 048
     Dates: start: 20160928, end: 20161010

REACTIONS (2)
  - Thrombocytopenic purpura [Recovering/Resolving]
  - Thrombocytopenic purpura [Recovered/Resolved]

NARRATIVE: CASE EVENT DATE: 20160928
